FAERS Safety Report 20306633 (Version 8)
Quarter: 2022Q1

REPORT INFORMATION
  Report Type: Report from Study
  Country: IT (occurrence: IT)
  Receive Date: 20220106
  Receipt Date: 20220309
  Transmission Date: 20220423
  Serious: Yes (Hospitalization, Other)
  Sender: FDA-Public Use
  Company Number: IT-BRISTOL-MYERS SQUIBB COMPANY-BMS-2021-143412

PATIENT
  Age: 5 Year
  Sex: Female
  Weight: 24 kg

DRUGS (5)
  1. INVESTIGATIONAL PRODUCT [Suspect]
     Active Substance: INVESTIGATIONAL PRODUCT
     Indication: Medulloblastoma
     Dosage: 0.145 MILLIGRAM
     Route: 042
     Dates: start: 20211111
  2. NIVOLUMAB [Suspect]
     Active Substance: NIVOLUMAB
     Indication: Medulloblastoma
     Dosage: 108 MILLIGRAM
     Route: 042
     Dates: start: 20211111
  3. ACETAMINOPHEN [Concomitant]
     Active Substance: ACETAMINOPHEN
     Indication: Prophylaxis
     Dosage: 300 MILLIGRAM, BID
     Route: 048
     Dates: start: 20211203
  4. LEVETIRACETAM [Concomitant]
     Active Substance: LEVETIRACETAM
     Indication: Prophylaxis
     Dosage: 6 MILLILITER, Q12H
     Route: 048
     Dates: start: 20200623
  5. OXATOMIDE [Concomitant]
     Active Substance: OXATOMIDE
     Indication: Rash
     Dosage: 1 DOSAGE FORM= 12 UNIT NOS
     Route: 048
     Dates: start: 20211216, end: 20211222

REACTIONS (1)
  - Nephrotic syndrome [Not Recovered/Not Resolved]

NARRATIVE: CASE EVENT DATE: 20211223
